FAERS Safety Report 23257297 (Version 1)
Quarter: 2023Q4

REPORT INFORMATION
  Report Type: Report from Study
  Country: JP (occurrence: JP)
  Receive Date: 20231204
  Receipt Date: 20231204
  Transmission Date: 20240110
  Serious: Yes (Death)
  Sender: FDA-Public Use
  Company Number: JP-ABBVIE-21K-087-3794928-00

PATIENT
  Sex: Male

DRUGS (2)
  1. CARBIDOPA\LEVODOPA [Suspect]
     Active Substance: CARBIDOPA\LEVODOPA
     Indication: Parkinson^s disease
     Dosage: CD: 1 ML/HR
     Route: 050
     Dates: start: 20210128
  2. CARBIDOPA\LEVODOPA [Suspect]
     Active Substance: CARBIDOPA\LEVODOPA

REACTIONS (6)
  - Sudden death [Fatal]
  - Mobility decreased [Unknown]
  - Visual impairment [Unknown]
  - Therapeutic product effect incomplete [Unknown]
  - Akinesia [Unknown]
  - Medical device pain [Unknown]

NARRATIVE: CASE EVENT DATE: 20210101
